FAERS Safety Report 15847656 (Version 1)
Quarter: 2019Q1

REPORT INFORMATION
  Report Type: Spontaneous
  Country: US (occurrence: US)
  Receive Date: 20190121
  Receipt Date: 20190121
  Transmission Date: 20190417
  Serious: Yes (Other)
  Sender: FDA-Public Use
  Company Number: US-009507513-1901USA004491

PATIENT
  Age: 34 Year
  Sex: Female

DRUGS (3)
  1. DIPROLENE AF [Suspect]
     Active Substance: BETAMETHASONE DIPROPIONATE
     Indication: EXFOLIATIVE RASH
     Dosage: UNK
     Route: 061
  2. HYDROCORTISONE. [Suspect]
     Active Substance: HYDROCORTISONE
     Indication: EXFOLIATIVE RASH
     Dosage: UNK
     Route: 061
  3. TRIAMCINOLONE [Suspect]
     Active Substance: TRIAMCINOLONE
     Indication: EXFOLIATIVE RASH
     Dosage: UNK
     Route: 061

REACTIONS (7)
  - Drug dependence [Recovered/Resolved]
  - Shared psychotic disorder [Recovered/Resolved]
  - Product administration error [Unknown]
  - Withdrawal syndrome [Recovered/Resolved]
  - Prescription drug used without a prescription [Unknown]
  - Perioral dermatitis [Recovered/Resolved]
  - Intentional product misuse [Unknown]
